FAERS Safety Report 15339998 (Version 1)
Quarter: 2018Q3

REPORT INFORMATION
  Report Type: Spontaneous
  Country: US (occurrence: US)
  Receive Date: 20180831
  Receipt Date: 20180831
  Transmission Date: 20181010
  Serious: Yes (Other)
  Sender: FDA-Public Use
  Company Number: US-ALKERMES INC.-ALK-2018-004646

PATIENT
  Age: 2 Decade
  Sex: Male
  Weight: 108.84 kg

DRUGS (2)
  1. ARISTADA [Suspect]
     Active Substance: ARIPIPRAZOLE LAUROXIL
     Indication: DRUG WITHDRAWAL SYNDROME
     Dosage: 662 MG, QMO
     Route: 030
     Dates: start: 20180715, end: 2018
  2. ARIPIPRAZOLE. [Concomitant]
     Active Substance: ARIPIPRAZOLE
     Indication: WITHDRAWAL SYNDROME
     Dosage: 4.5 MG, UNK
     Route: 048

REACTIONS (24)
  - Product administered at inappropriate site [Recovered/Resolved]
  - Impulsive behaviour [Recovering/Resolving]
  - Fear [Recovering/Resolving]
  - Mental disorder [Recovering/Resolving]
  - Daydreaming [Recovering/Resolving]
  - Hyperphagia [Recovering/Resolving]
  - Speech disorder [Recovering/Resolving]
  - Renal failure [Recovering/Resolving]
  - Injection site haematoma [Recovered/Resolved]
  - Injection site pain [Recovered/Resolved]
  - Insomnia [Recovering/Resolving]
  - Hyperhidrosis [Recovering/Resolving]
  - Muscle spasms [Recovering/Resolving]
  - Akathisia [Recovering/Resolving]
  - Weight increased [Recovering/Resolving]
  - Gait disturbance [Recovering/Resolving]
  - Tobacco user [Recovering/Resolving]
  - Sleep terror [Recovering/Resolving]
  - Anxiety [Recovering/Resolving]
  - Palpitations [Recovering/Resolving]
  - Hallucination [Recovering/Resolving]
  - Blister [Recovering/Resolving]
  - Irritability [Recovering/Resolving]
  - Off label use [Recovered/Resolved]

NARRATIVE: CASE EVENT DATE: 20150715
